FAERS Safety Report 7357833-1 (Version None)
Quarter: 2011Q1

REPORT INFORMATION
  Report Type: 
  Country: None (occurrence: None)
  Receive Date: 20110317
  Receipt Date: 20110310
  Transmission Date: 20110831
  Serious: Yes (Other)
  Sender: FDA-Public Use
  Company Number: US-JNJFOC-20110304865

PATIENT

DRUGS (1)
  1. LEVAQUIN [Suspect]
     Indication: PRODUCT USED FOR UNKNOWN INDICATION
     Route: 048

REACTIONS (4)
  - MENISCUS LESION [None]
  - LIGAMENT SPRAIN [None]
  - POSTERIOR CAPSULE RUPTURE [None]
  - HEPATITIS [None]
